FAERS Safety Report 7451199-4 (Version None)
Quarter: 2011Q2

REPORT INFORMATION
  Report Type: 
  Country: None (occurrence: None)
  Receive Date: 20110502
  Receipt Date: 20110420
  Transmission Date: 20111010
  Serious: Yes (Hospitalization, Other)
  Sender: FDA-Public Use
  Company Number: PHHY2011BR33379

PATIENT
  Sex: Male

DRUGS (3)
  1. DIOVAN AMLO FIX [Suspect]
     Indication: HYPERTENSION
     Dosage: 2 DF, PER DAY (160/5 MG)
     Route: 048
  2. NIMODIPINE [Concomitant]
     Indication: CEREBRAL DISORDER
     Dosage: UNK, 1 TABLET A DAY
     Dates: start: 20100601
  3. DIOVAN AMLO FIX [Suspect]
     Dosage: 1 DF, PER DAY (160/5 MG)
     Route: 048

REACTIONS (4)
  - CAROTID ARTERY STENOSIS [None]
  - CEREBROVASCULAR ACCIDENT [None]
  - HYPOKINESIA [None]
  - SPEECH DISORDER [None]
